FAERS Safety Report 4941494-2 (Version None)
Quarter: 2006Q1

REPORT INFORMATION
  Report Type: 
  Country: None (occurrence: None)
  Receive Date: 20060313
  Receipt Date: 20050913
  Transmission Date: 20060701
  Serious: Yes (Hospitalization, Other)
  Sender: FDA-Public Use
  Company Number: CA-BRISTOL-MYERS SQUIBB COMPANY-13228028

PATIENT
  Age: 59 Year
  Sex: Female

DRUGS (13)
  1. IFOSFAMIDE [Suspect]
     Indication: LUNG NEOPLASM MALIGNANT
     Dates: start: 20050704, end: 20050915
  2. MESNA [Suspect]
     Indication: LUNG NEOPLASM MALIGNANT
     Route: 042
     Dates: start: 20050704, end: 20050915
  3. MESNA [Suspect]
     Route: 048
     Dates: start: 20050704, end: 20050915
  4. VINORELBINE [Suspect]
     Indication: LUNG NEOPLASM MALIGNANT
     Dates: start: 20050704, end: 20050915
  5. HYDROMORPH CONTIN [Concomitant]
  6. OXYBUTYNIN [Concomitant]
  7. NORVASC [Concomitant]
  8. ALTACE [Concomitant]
  9. PREDNISONE TAB [Concomitant]
  10. ARAVA [Concomitant]
  11. MOBIC [Concomitant]
  12. PANTOPRAZOLE SODIUM [Concomitant]
  13. PREMARIN [Concomitant]

REACTIONS (7)
  - ANAEMIA [None]
  - DEHYDRATION [None]
  - DYSPHAGIA [None]
  - FEBRILE NEUTROPENIA [None]
  - NAUSEA [None]
  - PAIN IN EXTREMITY [None]
  - VOMITING [None]
